FAERS Safety Report 5347191-6 (Version None)
Quarter: 2007Q2

REPORT INFORMATION
  Report Type: 
  Country: None (occurrence: None)
  Receive Date: 20070604
  Receipt Date: 20070604
  Transmission Date: 20071010
  Serious: No
  Sender: FDA-Public Use
  Company Number: None

PATIENT
  Sex: Female
  Weight: 61.2356 kg

DRUGS (2)
  1. OXYCONTIN [Suspect]
     Indication: AORTIC ANEURYSM
     Dosage: 80MG BID
  2. OXYCONTIN [Suspect]
     Indication: BACK PAIN
     Dosage: 80MG BID

REACTIONS (3)
  - NAUSEA [None]
  - PHARMACEUTICAL PRODUCT COMPLAINT [None]
  - VOMITING [None]
